FAERS Safety Report 12691939 (Version 2)
Quarter: 2016Q3

REPORT INFORMATION
  Report Type: Report from Study
  Country: US (occurrence: US)
  Receive Date: 20160827
  Receipt Date: 20160921
  Transmission Date: 20161109
  Serious: No
  Sender: FDA-Public Use
  Company Number: US-AMGEN-USASL2016109210

PATIENT
  Age: 73 Year
  Sex: Female

DRUGS (3)
  1. WARFARIN [Concomitant]
     Active Substance: WARFARIN
     Indication: EPISTAXIS
  2. ENBREL [Suspect]
     Active Substance: ETANERCEPT
     Indication: RHEUMATOID ARTHRITIS
     Dosage: 50 MG, QWK
     Route: 065
     Dates: start: 2001
  3. INSULIN [Concomitant]
     Active Substance: INSULIN NOS
     Indication: DIABETES MELLITUS

REACTIONS (13)
  - Asthenia [Unknown]
  - Epistaxis [Unknown]
  - Underdose [Unknown]
  - Fatigue [Unknown]
  - Injection site bruising [Unknown]
  - Dyspnoea [Unknown]
  - Wheezing [Unknown]
  - Arthralgia [Recovering/Resolving]
  - Malaise [Unknown]
  - Musculoskeletal pain [Recovering/Resolving]
  - Pain in jaw [Recovering/Resolving]
  - Fall [Unknown]
  - Pain [Unknown]

NARRATIVE: CASE EVENT DATE: 201608
